FAERS Safety Report 8154789-9 (Version None)
Quarter: 2012Q1

REPORT INFORMATION
  Report Type: 
  Country: None (occurrence: None)
  Receive Date: 20120221
  Receipt Date: 20120209
  Transmission Date: 20120608
  Serious: Yes (Death)
  Sender: FDA-Public Use
  Company Number: PHHY2012NP014118

PATIENT
  Sex: Male

DRUGS (2)
  1. GLEEVEC [Suspect]
     Indication: CHRONIC MYELOID LEUKAEMIA
     Dosage: 600 MG, UNK
     Route: 065
  2. GLEEVEC [Suspect]
     Dosage: 800 MG, UNK
     Route: 065

REACTIONS (2)
  - SEPSIS [None]
  - BLAST CRISIS IN MYELOGENOUS LEUKAEMIA [None]
